FAERS Safety Report 15878028 (Version 3)
Quarter: 2019Q2

REPORT INFORMATION
  Report Type: Spontaneous
  Country: DE (occurrence: DE)
  Receive Date: 20190128
  Receipt Date: 20190416
  Transmission Date: 20190711
  Serious: Yes (Other)
  Sender: FDA-Public Use
  Company Number: DE-AMGEN-DEUSP2019012662

PATIENT
  Age: 79 Year
  Sex: Male

DRUGS (4)
  1. PROCORALAN [Suspect]
     Active Substance: IVABRADINE
     Indication: ANGINA PECTORIS
     Dosage: 5 MILLIGRAM, BID
     Route: 048
     Dates: start: 2013, end: 201901
  2. ACETYLSALICYLIC ACID [Concomitant]
     Active Substance: ASPIRIN
     Indication: PRODUCT USED FOR UNKNOWN INDICATION
     Dosage: 100 UNK
  3. PROCORALAN [Suspect]
     Active Substance: IVABRADINE
     Indication: HEART RATE INCREASED
  4. FOLIC ACID. [Concomitant]
     Active Substance: FOLIC ACID
     Indication: PRODUCT USED FOR UNKNOWN INDICATION
     Dosage: UNK

REACTIONS (4)
  - Diplopia [Recovered/Resolved]
  - Blood pressure fluctuation [Recovered/Resolved]
  - Balance disorder [Recovering/Resolving]
  - Nausea [Recovered/Resolved]

NARRATIVE: CASE EVENT DATE: 2013
